FAERS Safety Report 14445040 (Version 1)
Quarter: 2018Q1

REPORT INFORMATION
  Report Type: Spontaneous
  Country: US (occurrence: US)
  Receive Date: 20180126
  Receipt Date: 20180126
  Transmission Date: 20180509
  Serious: No
  Sender: FDA-Public Use
  Company Number: US-PFIZER INC-2018032709

PATIENT
  Age: 58 Year
  Sex: Female

DRUGS (1)
  1. CELEBREX [Suspect]
     Active Substance: CELECOXIB

REACTIONS (5)
  - Intentional product misuse [Unknown]
  - Pain [Unknown]
  - Drug effect incomplete [Unknown]
  - Arthralgia [Unknown]
  - Back pain [Unknown]
